FAERS Safety Report 14980448 (Version 3)
Quarter: 2018Q3

REPORT INFORMATION
  Report Type: Spontaneous
  Country: FR (occurrence: FR)
  Receive Date: 20180606
  Receipt Date: 20180723
  Transmission Date: 20181010
  Serious: No
  Sender: FDA-Public Use
  Company Number: FR-ROCHE-2135593

PATIENT
  Age: 52 Year
  Sex: Female

DRUGS (5)
  1. OCREVUS [Suspect]
     Active Substance: OCRELIZUMAB
     Indication: PRIMARY PROGRESSIVE MULTIPLE SCLEROSIS
     Route: 041
     Dates: start: 20180517, end: 20180517
  2. METHYLPREDNISOLONE. [Concomitant]
     Active Substance: METHYLPREDNISOLONE
     Route: 065
  3. DAFALGAN [Concomitant]
     Active Substance: ACETAMINOPHEN
  4. CETIRIZINE [Concomitant]
     Active Substance: CETIRIZINE HYDROCHLORIDE
  5. HEPT?A?MYL [Concomitant]
     Active Substance: HEPTAMINOL HYDROCHLORIDE

REACTIONS (2)
  - Diarrhoea [Recovered/Resolved]
  - Herpes virus infection [Not Recovered/Not Resolved]

NARRATIVE: CASE EVENT DATE: 20180517
